FAERS Safety Report 18853527 (Version 2)
Quarter: 2021Q1

REPORT INFORMATION
  Report Type: Spontaneous
  Country: US (occurrence: US)
  Receive Date: 20210205
  Receipt Date: 20210326
  Transmission Date: 20210420
  Serious: Yes (Hospitalization)
  Sender: FDA-Public Use
  Company Number: US-ASTRAZENECA-2021A025526

PATIENT
  Age: 60 Year
  Sex: Female
  Weight: 54.4 kg

DRUGS (3)
  1. PULMICORT FLEXHALER [Suspect]
     Active Substance: BUDESONIDE
     Indication: ASTHMA
     Route: 055
     Dates: start: 20201208
  2. PULMICORT FLEXHALER [Suspect]
     Active Substance: BUDESONIDE
     Indication: ASTHMA
     Route: 055
     Dates: start: 2016, end: 2018
  3. VITAMIN [Concomitant]
     Active Substance: VITAMINS

REACTIONS (7)
  - Wrong technique in device usage process [Unknown]
  - COVID-19 [Recovered/Resolved]
  - Intentional device misuse [Unknown]
  - Dyspnoea [Recovering/Resolving]
  - Incorrect dose administered by device [Unknown]
  - Device failure [Unknown]
  - Intentional product misuse [Unknown]

NARRATIVE: CASE EVENT DATE: 2016
